FAERS Safety Report 6442993-7 (Version None)
Quarter: 2009Q4

REPORT INFORMATION
  Report Type: 
  Country: None (occurrence: None)
  Receive Date: 20091117
  Receipt Date: 20091103
  Transmission Date: 20100525
  Serious: Yes (Hospitalization, Other)
  Sender: FDA-Public Use
  Company Number: PHHY2009PL48047

PATIENT
  Sex: Female
  Weight: 58 kg

DRUGS (3)
  1. MYFORTIC [Suspect]
     Indication: IMMUNOSUPPRESSION
     Dosage: 1440 (UNITS UNSPECIFIED)
     Route: 048
     Dates: start: 20090306
  2. TACROLIMUS [Concomitant]
     Indication: IMMUNOSUPPRESSION
     Dosage: 4 MG, UNK
     Dates: start: 20090306
  3. ENCORTON [Concomitant]
     Indication: IMMUNOSUPPRESSION
     Dosage: 10 MG, UNK
     Dates: start: 20080306

REACTIONS (3)
  - ESCHERICHIA URINARY TRACT INFECTION [None]
  - NEPHRECTOMY [None]
  - URINARY TRACT INFECTION [None]
